FAERS Safety Report 22888592 (Version 2)
Quarter: 2023Q4

REPORT INFORMATION
  Report Type: Spontaneous
  Country: GB (occurrence: GB)
  Receive Date: 20230831
  Receipt Date: 20231004
  Transmission Date: 20240110
  Serious: Yes (Other)
  Sender: FDA-Public Use
  Company Number: GB-SANDOZ-SDZ2023GB015606

PATIENT
  Age: 68 Year
  Sex: Male

DRUGS (21)
  1. SUNITINIB MALATE [Suspect]
     Active Substance: SUNITINIB MALATE
     Indication: Pancreatic neuroendocrine tumour
     Dosage: 37.5 MG, QD (MAR-APR)
     Route: 065
     Dates: start: 2018
  2. SUNITINIB MALATE [Suspect]
     Active Substance: SUNITINIB MALATE
     Dosage: 37.5 MG, QD (MAY-DEC)
     Dates: start: 2018
  3. CAPECITABINE [Suspect]
     Active Substance: CAPECITABINE
     Indication: Pancreatic neuroendocrine tumour
     Dosage: 1150 MG, 2X/DAY
     Route: 042
     Dates: start: 2018
  4. EVEROLIMUS [Suspect]
     Active Substance: EVEROLIMUS
     Indication: Pancreatic neuroendocrine tumour
     Dosage: 10 MG, QD (SEP- OCT)
     Dates: start: 2017
  5. EVEROLIMUS [Suspect]
     Active Substance: EVEROLIMUS
     Dosage: 5 MG, QD (REDUCED)
     Route: 065
     Dates: start: 2017
  6. EVEROLIMUS [Suspect]
     Active Substance: EVEROLIMUS
     Dosage: 10 MG, QD
     Route: 065
  7. LANREOTIDE [Suspect]
     Active Substance: LANREOTIDE
     Indication: Pancreatic neuroendocrine tumour
     Dosage: 60 MG Q4W
     Route: 065
     Dates: start: 2008, end: 2016
  8. LANREOTIDE [Suspect]
     Active Substance: LANREOTIDE
     Dosage: 120 MG, Q4W (AUTOGEL) (SEP-OCT)
     Dates: start: 2017
  9. LANREOTIDE [Suspect]
     Active Substance: LANREOTIDE
     Dosage: 120 MG Q4W
     Route: 065
     Dates: start: 2018
  10. LANREOTIDE [Suspect]
     Active Substance: LANREOTIDE
     Dosage: 120 MG, Q4W (AUTOGEL) (MAY-DEC)
     Dates: start: 2018
  11. LANREOTIDE [Suspect]
     Active Substance: LANREOTIDE
     Dosage: 120 MG, Q4W (AUTOGEL) (JAN-APR)
     Route: 065
     Dates: start: 2018
  12. LANREOTIDE [Suspect]
     Active Substance: LANREOTIDE
     Dosage: 120 MG, Q4W (AUTOGEL) (MAR-APR)
     Route: 065
     Dates: start: 2018
  13. LANREOTIDE [Suspect]
     Active Substance: LANREOTIDE
     Dosage: 120 MG, Q4W (AUTOGEL) (MAY-SEP)K
     Dates: start: 2019
  14. STREPTOZOCIN [Suspect]
     Active Substance: STREPTOZOCIN
     Indication: Pancreatic neuroendocrine tumour
     Dosage: UNK UNK, 2X/DAY
     Route: 042
     Dates: start: 2018
  15. LUTATHERA [Suspect]
     Active Substance: LUTETIUM OXODOTREOTIDE LU-177
     Indication: Pancreatic neuroendocrine tumour
     Dosage: 7.7 GBQ
     Dates: start: 201905
  16. LUTATHERA [Suspect]
     Active Substance: LUTETIUM OXODOTREOTIDE LU-177
     Dosage: 7.7 GBQ
     Dates: start: 201907
  17. LUTATHERA [Suspect]
     Active Substance: LUTETIUM OXODOTREOTIDE LU-177
     Dosage: 7.7 GBQ
     Route: 065
     Dates: start: 201909
  18. BISOPROLOL [Concomitant]
     Active Substance: BISOPROLOL\BISOPROLOL FUMARATE
     Indication: Atrial fibrillation
     Route: 065
  19. EDOXABAN [Concomitant]
     Active Substance: EDOXABAN
     Indication: Atrial fibrillation
     Route: 065
  20. LANSOPRAZOLE [Concomitant]
     Active Substance: LANSOPRAZOLE
     Indication: Pancreatic neuroendocrine tumour
     Dosage: UNK
     Route: 065
  21. SODIUM CHLORIDE [Concomitant]
     Active Substance: SODIUM CHLORIDE
     Dosage: 1000 ML (1150 MG BD)
     Route: 042

REACTIONS (10)
  - Dry eye [Unknown]
  - Dry mouth [Unknown]
  - Liver disorder [Unknown]
  - Sepsis [Unknown]
  - Palmar-plantar erythrodysaesthesia syndrome [Unknown]
  - Eye discharge [Unknown]
  - Fatigue [Unknown]
  - Tumour necrosis [Unknown]
  - Hypoglycaemia [Recovered/Resolved]
  - Neoplasm progression [Unknown]

NARRATIVE: CASE EVENT DATE: 20180101
